FAERS Safety Report 4589827-3 (Version None)
Quarter: 2005Q1

REPORT INFORMATION
  Report Type: 
  Country: None (occurrence: None)
  Receive Date: 20050223
  Receipt Date: 20050215
  Transmission Date: 20050727
  Serious: Yes (Death)
  Sender: FDA-Public Use
  Company Number: DE-ABBOTT-05P-062-0291390-00

PATIENT
  Age: 84 Year
  Sex: Female

DRUGS (1)
  1. TRANDOLAPRIL [Suspect]
     Indication: DRUG USE FOR UNKNOWN INDICATION

REACTIONS (8)
  - ABDOMINAL PAIN [None]
  - ASPIRATION [None]
  - CARDIAC ARREST [None]
  - COLITIS [None]
  - INTESTINAL OBSTRUCTION [None]
  - REFLUX OESOPHAGITIS [None]
  - VENTRICULAR FAILURE [None]
  - VOMITING [None]
